FAERS Safety Report 9280166 (Version 1)
Quarter: 2013Q2

REPORT INFORMATION
  Report Type: Spontaneous
  Country: US (occurrence: None)
  Receive Date: 20130507
  Receipt Date: 20130507
  Transmission Date: 20140414
  Serious: Yes (Disabling)
  Sender: FDA-Public Use
  Company Number: None

PATIENT
  Age: 8 Year
  Sex: Female

DRUGS (1)
  1. FLONASE [Suspect]
     Indication: SEASONAL ALLERGY
     Dates: start: 200909

REACTIONS (1)
  - Nasal disorder [None]
